FAERS Safety Report 7345699-5 (Version None)
Quarter: 2011Q1

REPORT INFORMATION
  Report Type: 
  Country: None (occurrence: None)
  Receive Date: 20110310
  Receipt Date: 20110225
  Transmission Date: 20110831
  Serious: Yes (Life-Threatening)
  Sender: FDA-Public Use
  Company Number: NO-MYLANLABS-2011S1003948

PATIENT
  Age: 65 Year
  Sex: Female

DRUGS (8)
  1. AMARYL [Concomitant]
     Indication: TYPE 2 DIABETES MELLITUS
     Route: 048
  2. RENITEC COMP [Interacting]
     Indication: HYPERTENSION
     Route: 048
  3. SIMVASTATIN [Concomitant]
     Indication: PRODUCT USED FOR UNKNOWN INDICATION
  4. PROBECID [Concomitant]
     Indication: PRODUCT USED FOR UNKNOWN INDICATION
  5. SOMAC [Concomitant]
     Indication: PRODUCT USED FOR UNKNOWN INDICATION
  6. METFORMIN [Suspect]
     Indication: TYPE 2 DIABETES MELLITUS
  7. METOPROLOL [Concomitant]
     Indication: PRODUCT USED FOR UNKNOWN INDICATION
  8. LASIX [Concomitant]
     Indication: PRODUCT USED FOR UNKNOWN INDICATION

REACTIONS (2)
  - RENAL FAILURE [None]
  - LACTIC ACIDOSIS [None]
